FAERS Safety Report 8147265 (Version 3)
Quarter: 2014Q3

REPORT INFORMATION
  Report Type: Spontaneous
  Country: TR (occurrence: TR)
  Receive Date: 20110922
  Receipt Date: 20140728
  Transmission Date: 20150326
  Serious: Yes (Other)
  Sender: FDA-Public Use
  Company Number: TR-RANBAXY-2011R1-47697

PATIENT
  Age: 28 Year
  Sex: Male

DRUGS (2)
  1. PHENIRAMINE [Concomitant]
     Active Substance: PHENIRAMINE
     Indication: URTICARIA
     Dosage: UNK
     Route: 042
  2. RANITIDINE [Suspect]
     Active Substance: RANITIDINE\RANITIDINE HYDROCHLORIDE
     Indication: URTICARIA
     Dosage: UNK
     Route: 042

REACTIONS (2)
  - Hypotension [Recovered/Resolved]
  - Bradycardia [Recovered/Resolved]
